FAERS Safety Report 6229824-5 (Version None)
Quarter: 2009Q2

REPORT INFORMATION
  Report Type: 
  Country: None (occurrence: None)
  Receive Date: 20090615
  Receipt Date: 20090603
  Transmission Date: 20091009
  Serious: Yes (Hospitalization)
  Sender: FDA-Public Use
  Company Number: FR-PFIZER INC-2009221827

PATIENT
  Age: 65 Year

DRUGS (11)
  1. SOLU-MEDROL [Suspect]
     Dosage: UNK
     Dates: start: 20080222, end: 20080224
  2. AMLOR [Concomitant]
     Dosage: 10 MG, UNK
  3. NEBIVOLOL [Concomitant]
     Dosage: 5 MG, UNK
  4. EUPRESSYL [Concomitant]
  5. LASIX [Concomitant]
  6. INIPOMP [Concomitant]
  7. FUMAFER [Concomitant]
  8. SOLUPRED [Concomitant]
  9. IMOVANE [Concomitant]
  10. CACIT D3 [Concomitant]
  11. KAYEXALATE [Concomitant]

REACTIONS (1)
  - ARTHRITIS BACTERIAL [None]
